FAERS Safety Report 9232239 (Version 1)
Quarter: 2013Q2

REPORT INFORMATION
  Report Type: Spontaneous
  Country: US (occurrence: US)
  Receive Date: 20130415
  Receipt Date: 20130415
  Transmission Date: 20140414
  Serious: Yes (Other)
  Sender: FDA-Public Use
  Company Number: US-AMGEN-USASP2013025885

PATIENT
  Age: 66 Year
  Sex: Female
  Weight: 58.8 kg

DRUGS (1)
  1. PROCRIT [Suspect]
     Indication: HAEMOLYTIC ANAEMIA
     Dosage: 40000 UNIT, QWK
     Dates: start: 20120327

REACTIONS (2)
  - Coombs positive haemolytic anaemia [Unknown]
  - Haemoglobin decreased [Unknown]
